FAERS Safety Report 5739643-1 (Version None)
Quarter: 2008Q2

REPORT INFORMATION
  Report Type: 
  Country: None (occurrence: None)
  Receive Date: 20080513
  Receipt Date: 20080425
  Transmission Date: 20081010
  Serious: Yes (Other)
  Sender: FDA-Public Use
  Company Number: DSJ-2008-03214

PATIENT
  Age: 80 Year
  Sex: Male
  Weight: 70 kg

DRUGS (6)
  1. OLMESARTAN MEDOXOMIL [Suspect]
     Indication: HYPERTENSION
     Dosage: 10 MG (10 MG, 1 IN 1 D), PER ORAL
     Route: 048
     Dates: start: 20070307
  2. CALBLOCK (AZELNIDIPINE) (TABLET) (AZELNIDIPINE) [Suspect]
     Indication: HYPERTENSION
     Dosage: 16 MG (16 MG, 1 IN 1 D), PER ORAL
     Route: 048
     Dates: start: 20050117, end: 20080221
  3. LANIRAPID (METILDIGOXIN) (TABLET) (METILDIGOXIN) [Suspect]
     Indication: CARDIAC FAILURE CHRONIC
     Dosage: 1 DOSAGE FORMS (1 DOSAGE FORMS, 1 IN 1 D),
     Dates: start: 19990618
  4. ALDACTAZIDE-A [Suspect]
     Indication: CARDIAC FAILURE CHRONIC
     Dosage: 50 MG (25 MG, 2 IN 1 D), PER ORAL
     Route: 048
     Dates: start: 20071013
  5. HARNAL (TAMSULOSIN HYDROCHLORIDE) (TABLET) (TAMSULOSIN HYDROCHLORIDE) [Suspect]
     Indication: BENIGN PROSTATIC HYPERPLASIA
     Dosage: 0.2 MG (0.2 MG, 1 IN 1 D), PER ORAL
     Route: 048
     Dates: start: 19990618
  6. ACTOS [Suspect]
     Indication: GLUCOSE TOLERANCE IMPAIRED
     Dosage: 15 MG (15 MG, 1 IN 1 D), PER ORAL
     Route: 048
     Dates: start: 20041113

REACTIONS (4)
  - ATRIOVENTRICULAR BLOCK [None]
  - DIZZINESS [None]
  - DRUG INTERACTION [None]
  - SINOATRIAL BLOCK [None]
